FAERS Safety Report 4941456-5 (Version None)
Quarter: 2006Q1

REPORT INFORMATION
  Report Type: 
  Country: None (occurrence: None)
  Receive Date: 20060313
  Receipt Date: 20051006
  Transmission Date: 20060701
  Serious: Yes (Hospitalization, Disabling, Other)
  Sender: FDA-Public Use
  Company Number: US-MERCK-0510USA05847

PATIENT
  Age: 56 Year
  Sex: Female

DRUGS (1)
  1. VIOXX [Suspect]
     Indication: ARTHRALGIA
     Route: 048
     Dates: start: 20040101, end: 20040401

REACTIONS (19)
  - AORTIC VALVE INCOMPETENCE [None]
  - ATRIAL FIBRILLATION [None]
  - BRAIN STEM INFARCTION [None]
  - CATARACT [None]
  - DEPRESSION [None]
  - DIABETES MELLITUS [None]
  - DIABETIC NEUROPATHY [None]
  - DIABETIC RETINAL OEDEMA [None]
  - DIABETIC RETINOPATHY [None]
  - ELECTROCARDIOGRAM ABNORMAL [None]
  - EYE DISORDER [None]
  - FALL [None]
  - HUMERUS FRACTURE [None]
  - HYPERTENSION [None]
  - HYPOKALAEMIA [None]
  - INJURY [None]
  - PERIPHERAL VASCULAR DISORDER [None]
  - URINARY INCONTINENCE [None]
  - VITREOUS HAEMORRHAGE [None]
